FAERS Safety Report 6298710-7 (Version None)
Quarter: 2009Q3

REPORT INFORMATION
  Report Type: 
  Country: None (occurrence: None)
  Receive Date: 20090806
  Receipt Date: 20090728
  Transmission Date: 20100115
  Serious: Yes (Hospitalization)
  Sender: FDA-Public Use
  Company Number: DE-BIOGENIDEC-2009BI015238

PATIENT
  Age: 57 Year
  Sex: Male
  Weight: 80 kg

DRUGS (4)
  1. TYSABRI [Suspect]
     Indication: MULTIPLE SCLEROSIS
     Route: 042
     Dates: start: 20080318
  2. BACLOFEN [Concomitant]
     Route: 048
  3. LYRIKA [Concomitant]
     Route: 048
  4. VIVEO [Concomitant]

REACTIONS (1)
  - NEUROMYELITIS OPTICA [None]
